FAERS Safety Report 8356651 (Version 2)
Quarter: 2013Q2

REPORT INFORMATION
  Report Type: Spontaneous
  Country: AU (occurrence: AU)
  Receive Date: 20120126
  Receipt Date: 20130529
  Transmission Date: 20140414
  Serious: Yes (Other)
  Sender: FDA-Public Use
  Company Number: AU-GLAXOSMITHKLINE-B0775596A

PATIENT
  Age: 68 Year
  Sex: Female
  Weight: 57 kg

DRUGS (1)
  1. ZOVIRAX [Suspect]
     Indication: HERPES OPHTHALMIC
     Dosage: 1CM FIVE TIMES PER DAY
     Route: 047
     Dates: start: 20111229

REACTIONS (2)
  - Eye discharge [Recovering/Resolving]
  - Product quality issue [Unknown]
